FAERS Safety Report 9254459 (Version 1)
Quarter: 2013Q2

REPORT INFORMATION
  Report Type: Spontaneous
  Country: US (occurrence: None)
  Receive Date: 20130422
  Receipt Date: 20130422
  Transmission Date: 20140414
  Serious: Yes (Other)
  Sender: FDA-Public Use
  Company Number: ACO_35559_2013

PATIENT
  Age: 54 Year
  Sex: Male

DRUGS (10)
  1. AMPYRA (DALFAMPRIDINE) TABLET, 10MG [Suspect]
     Indication: PRODUCT USED FOR UNKNOWN INDICATION
  2. LOMOTIL (ATROPINE SULFATE, DIPHENOXLATE HYDROCHLORIDE) [Concomitant]
  3. MORPHINE SULFATE (MORPHINE SULFATE) [Concomitant]
  4. LIPITOR (ATORVASTATIN CALCIUM) [Concomitant]
  5. DIOVAN (VALSARTAN) [Concomitant]
  6. TRIAMTERENE AND HYDROCHLOROTHIAZIDE (HYDROCHLOROTHIAZIDE, TRIAMTERENE) [Concomitant]
  7. METFORMIN (METFORMIN) (METFORMIN) [Concomitant]
  8. PLAVIX (CLOPIDOGREL BISULFATE) [Concomitant]
  9. ACIPHEX (RABEPRAZOLE SODIUM) [Concomitant]
  10. HYDROCODONE (HYDROCODONE BITARTRATE) [Concomitant]

REACTIONS (3)
  - Coronary arterial stent insertion [None]
  - Diarrhoea [None]
  - Stent placement [None]
